FAERS Safety Report 7741544-4 (Version None)
Quarter: 2011Q3

REPORT INFORMATION
  Report Type: 
  Country: None (occurrence: None)
  Receive Date: 20110909
  Receipt Date: 20110902
  Transmission Date: 20111222
  Serious: Yes (Hospitalization)
  Sender: FDA-Public Use
  Company Number: US-ASTRAZENECA-2011SE53330

PATIENT
  Age: 57 Year
  Sex: Female
  Weight: 86.2 kg

DRUGS (3)
  1. NAPROXEN [Concomitant]
     Indication: PAIN
     Route: 065
  2. LORAD [Concomitant]
     Route: 065
  3. SEROQUEL [Suspect]
     Indication: BIPOLAR DISORDER
     Dosage: 100 MG IN THE MORNING AND 400 MG AT NIGHT
     Route: 048

REACTIONS (1)
  - UPPER LIMB FRACTURE [None]
